FAERS Safety Report 19234871 (Version 2)
Quarter: 2021Q2

REPORT INFORMATION
  Report Type: Report from Study
  Country: US (occurrence: US)
  Receive Date: 20210509
  Receipt Date: 20210513
  Transmission Date: 20210717
  Serious: Yes (Other)
  Sender: FDA-Public Use
  Company Number: US-UCBSA-2021019954

PATIENT
  Age: 35 Year
  Sex: Male

DRUGS (4)
  1. LACOSAMIDE. [Suspect]
     Active Substance: LACOSAMIDE
     Indication: SEIZURE
     Dosage: 200 MG TWICE DAILY AND ALSO TAKING 50 MG TABLET
     Route: 048
     Dates: end: 20210426
  2. LACOSAMIDE. [Suspect]
     Active Substance: LACOSAMIDE
     Dosage: 200MG TWICE DAILY AND 100MG AT NIGHT
     Route: 048
  3. LACOSAMIDE. [Suspect]
     Active Substance: LACOSAMIDE
     Dosage: 200MG DAILY
  4. LACOSAMIDE. [Suspect]
     Active Substance: LACOSAMIDE
     Dosage: 50 MILLIGRAM, 3X/DAY (TID)
     Route: 048

REACTIONS (6)
  - Overdose [Unknown]
  - Therapy interrupted [Unknown]
  - Generalised tonic-clonic seizure [Not Recovered/Not Resolved]
  - Product availability issue [Unknown]
  - Off label use [Unknown]
  - Intentional product misuse [Unknown]

NARRATIVE: CASE EVENT DATE: 202104
